FAERS Safety Report 4966277-9 (Version None)
Quarter: 2006Q2

REPORT INFORMATION
  Report Type: 
  Country: None (occurrence: None)
  Receive Date: 20060407
  Receipt Date: 20030929
  Transmission Date: 20061013
  Serious: Yes (Hospitalization, Other)
  Sender: FDA-Public Use
  Company Number: US-MERCK-0310USA00144

PATIENT
  Age: 47 Year
  Sex: Male
  Weight: 84 kg

DRUGS (6)
  1. VIOXX [Suspect]
     Indication: PAIN
     Route: 048
     Dates: start: 19990101
  2. VIOXX [Suspect]
     Route: 048
     Dates: end: 20020101
  3. VIOXX [Suspect]
     Route: 048
     Dates: start: 20010129, end: 20010131
  4. VIOXX [Suspect]
     Indication: RHEUMATOID ARTHRITIS
     Route: 048
     Dates: start: 19990101
  5. VIOXX [Suspect]
     Route: 048
     Dates: end: 20020101
  6. VIOXX [Suspect]
     Route: 048
     Dates: start: 20010129, end: 20010131

REACTIONS (16)
  - ACUTE MYOCARDIAL INFARCTION [None]
  - BLOOD CHOLESTEROL INCREASED [None]
  - CONVULSION [None]
  - CORONARY ARTERY DISEASE [None]
  - EAR INFECTION [None]
  - FEELING COLD [None]
  - HAEMORRHOIDS [None]
  - HICCUPS [None]
  - HOT FLUSH [None]
  - HYPERTENSION [None]
  - HYPOAESTHESIA [None]
  - MUSCLE STRAIN [None]
  - POST-TRAUMATIC HEADACHE [None]
  - RASH [None]
  - ROAD TRAFFIC ACCIDENT [None]
  - TENDONITIS [None]
